FAERS Safety Report 6636185-6 (Version None)
Quarter: 2010Q1

REPORT INFORMATION
  Report Type: 
  Country: None (occurrence: None)
  Receive Date: 20100316
  Receipt Date: 20100302
  Transmission Date: 20100710
  Serious: Yes (Hospitalization)
  Sender: FDA-Public Use
  Company Number: CH-ELI_LILLY_AND_COMPANY-CH201003002198

PATIENT
  Sex: Male

DRUGS (7)
  1. FLUCTINE [Suspect]
     Dosage: 20 MG, DAILY (1/D)
     Route: 064
     Dates: start: 20081201, end: 20081201
  2. AZATHIOPRINE [Concomitant]
     Indication: CROHN'S DISEASE
     Dosage: 100 MG, DAILY (1/D)
     Route: 064
     Dates: start: 20081115, end: 20090619
  3. CIPROXIN [Concomitant]
     Dosage: UNK, UNK
     Route: 064
     Dates: start: 20081201, end: 20081201
  4. ACCUPAQUE [Concomitant]
     Route: 064
     Dates: start: 20081223, end: 20081223
  5. FLAGYL [Concomitant]
     Route: 064
     Dates: start: 20081201, end: 20081201
  6. ROCEPHIN [Concomitant]
     Route: 064
     Dates: start: 20081201, end: 20081201
  7. PREDNISONE TAB [Concomitant]
     Indication: CROHN'S DISEASE
     Dosage: 20 MG, DAILY (1/D)
     Route: 064

REACTIONS (2)
  - DRUG EXPOSURE DURING PREGNANCY [None]
  - PREMATURE BABY [None]
